FAERS Safety Report 5112698-3 (Version None)
Quarter: 2006Q3

REPORT INFORMATION
  Report Type: 
  Country: None (occurrence: None)
  Receive Date: 20060922
  Receipt Date: 20060530
  Transmission Date: 20061208
  Serious: No
  Sender: FDA-Public Use
  Company Number: ZA-GLAXOSMITHKLINE-B0426031B

PATIENT

DRUGS (1)
  1. AUGMENTIN '500' [Suspect]
     Dates: start: 20060101, end: 20060101

REACTIONS (1)
  - DRUG EXPOSURE DURING PREGNANCY [None]
